FAERS Safety Report 16019921 (Version 6)
Quarter: 2019Q2

REPORT INFORMATION
  Report Type: Report from Study
  Country: US (occurrence: US)
  Receive Date: 20190228
  Receipt Date: 20190426
  Transmission Date: 20190711
  Serious: Yes (Hospitalization)
  Sender: FDA-Public Use
  Company Number: US-ACTELION-A-NJ2018-183217

PATIENT
  Sex: Female
  Weight: 62.13 kg

DRUGS (5)
  1. COUMADIN [Concomitant]
     Active Substance: WARFARIN SODIUM
  2. ADEMPAS [Suspect]
     Active Substance: RIOCIGUAT
     Indication: PRODUCT USED FOR UNKNOWN INDICATION
     Dosage: 2 MG, TID
     Route: 065
  3. OPSUMIT [Suspect]
     Active Substance: MACITENTAN
     Indication: PULMONARY HYPERTENSION
     Dosage: 10 MG, QPM
     Route: 048
     Dates: start: 201811
  4. ADEMPAS [Suspect]
     Active Substance: RIOCIGUAT
     Dosage: 1.5 MG
     Route: 065
  5. OXYGEN. [Concomitant]
     Active Substance: OXYGEN

REACTIONS (16)
  - Cardiac valve disease [Unknown]
  - Cough [Recovering/Resolving]
  - Sleep apnoea syndrome [Unknown]
  - Headache [Recovering/Resolving]
  - Nasal congestion [Unknown]
  - Fatigue [Unknown]
  - Thyroid disorder [Unknown]
  - Pulmonary embolism [Unknown]
  - Thromboembolectomy [Not Recovered/Not Resolved]
  - Pulmonary hypertension [Unknown]
  - Angioplasty [Unknown]
  - Hypotension [Unknown]
  - Cardiac operation [Unknown]
  - Somnolence [Recovering/Resolving]
  - Blood pressure systolic decreased [Unknown]
  - Aspiration pleural cavity [Unknown]
